FAERS Safety Report 11039110 (Version 2)
Quarter: 2015Q2

REPORT INFORMATION
  Report Type: Spontaneous
  Country: PL (occurrence: PL)
  Receive Date: 20150416
  Receipt Date: 20150512
  Transmission Date: 20150821
  Serious: Yes (Life-Threatening, Hospitalization, Other)
  Sender: FDA-Public Use
  Company Number: PL-MERCK-1504POL009371

PATIENT
  Age: 8 Year
  Sex: Female
  Weight: 25 kg

DRUGS (9)
  1. TAZOCIN [Concomitant]
     Active Substance: PIPERACILLIN SODIUM\TAZOBACTAM SODIUM
     Indication: INFECTION
     Dosage: 2.7 G, TID, 3X2.7 G
     Dates: start: 20150308, end: 20150313
  2. ENCORTON [Concomitant]
     Active Substance: PREDNISONE
     Indication: ACUTE LYMPHOCYTIC LEUKAEMIA
     Dosage: 97MG-DOSE  REDUCTION TO 14MG
     Dates: start: 20150211, end: 20150320
  3. BISEPTOL (SULFAMETHOXAZOLE (+) TRIMETHOPRIM) [Concomitant]
     Dosage: 480MG/DAY ON MONDAY, WEDNESDAY AND FRIDAY
  4. MERONEM [Concomitant]
     Active Substance: MEROPENEM
     Indication: BACTERIAL INFECTION
     Dosage: 1 G, TID, 3X1G
     Dates: start: 20150314, end: 20150326
  5. NOXAFIL [Suspect]
     Active Substance: POSACONAZOLE
     Indication: ANTIFUNGAL PROPHYLAXIS
     Dosage: UNK, 2X5ML, (TOTAL DAILY DOSE 400 MG)
     Route: 048
     Dates: start: 20150305, end: 20150314
  6. TRAMAL [Suspect]
     Active Substance: TRAMADOL
     Indication: PAIN
     Dosage: 25 MG, QID, 4X25 MG (ORAL DROPS)
     Route: 048
     Dates: start: 20150312, end: 20150312
  7. ENCORTON [Concomitant]
     Active Substance: PREDNISONE
     Dosage: UNK
     Dates: start: 2015
  8. AMICIN [Concomitant]
     Indication: INFECTION
     Dosage: UNK
     Dates: start: 20150310, end: 20150315
  9. VINCRISTINE SULFATE. [Suspect]
     Active Substance: VINCRISTINE SULFATE
     Indication: ACUTE LYMPHOCYTIC LEUKAEMIA
     Dosage: 1.4 MG, QD
     Route: 042
     Dates: start: 20150306, end: 20150306

REACTIONS (10)
  - Partial seizures [Recovered/Resolved]
  - Inappropriate antidiuretic hormone secretion [Recovered/Resolved]
  - Hyponatraemia [Recovered/Resolved]
  - Hypochloraemia [Recovered/Resolved]
  - Hallucination [Recovered/Resolved]
  - Hallucination, visual [Recovered/Resolved]
  - Mental disorder [Recovered/Resolved]
  - Polyuria [Recovered/Resolved]
  - Brain oedema [Recovered/Resolved]
  - Anxiety disorder [Recovered/Resolved]

NARRATIVE: CASE EVENT DATE: 201503
